FAERS Safety Report 23188105 (Version 2)
Quarter: 2023Q4

REPORT INFORMATION
  Report Type: Spontaneous
  Country: US (occurrence: US)
  Receive Date: 20231115
  Receipt Date: 20231120
  Transmission Date: 20240110
  Serious: No
  Sender: FDA-Public Use
  Company Number: US-PFIZER INC-202300358421

PATIENT
  Age: 22 Year
  Sex: Female

DRUGS (1)
  1. EUCRISA [Suspect]
     Active Substance: CRISABOROLE
     Indication: Alopecia areata
     Dosage: UNK
     Route: 061

REACTIONS (3)
  - Illness [Unknown]
  - Drug ineffective for unapproved indication [Unknown]
  - Off label use [Unknown]
